FAERS Safety Report 7588913-3 (Version None)
Quarter: 2011Q3

REPORT INFORMATION
  Report Type: 
  Country: None (occurrence: None)
  Receive Date: 20110705
  Receipt Date: 20110627
  Transmission Date: 20111222
  Serious: Yes (Death, Life-Threatening)
  Sender: FDA-Public Use
  Company Number: DE-JNJFOC-20110611084

PATIENT
  Age: 45 Year
  Sex: Female
  Weight: 125.2 kg

DRUGS (16)
  1. ZYPREXA [Suspect]
     Route: 048
     Dates: start: 20040101, end: 20110201
  2. DOXYCYCLINE [Concomitant]
     Route: 048
     Dates: start: 20110311, end: 20110311
  3. ZYPREXA [Suspect]
     Indication: PRODUCT USED FOR UNKNOWN INDICATION
     Route: 048
     Dates: start: 20110315, end: 20110316
  4. ZYPREXA [Suspect]
     Route: 048
     Dates: start: 20110309, end: 20110309
  5. DOXYCYCLINE [Concomitant]
     Indication: CONJUNCTIVITIS
     Route: 048
     Dates: start: 20110312, end: 20110316
  6. DIAZEPAM [Concomitant]
     Dates: start: 20110316
  7. CYCLOPENTOLAT [Concomitant]
     Indication: CONJUNCTIVITIS
     Route: 065
     Dates: start: 20110315, end: 20110316
  8. MELPERON [Concomitant]
     Route: 048
     Dates: start: 20110309, end: 20110309
  9. EYE MEDICATIONS [Concomitant]
     Indication: CONJUNCTIVITIS
  10. HALDOL [Suspect]
     Indication: RESTLESSNESS
     Route: 048
     Dates: start: 20110316
  11. MELPERON [Concomitant]
     Route: 048
     Dates: start: 20040101, end: 20110201
  12. MELPERON [Concomitant]
     Route: 048
     Dates: start: 20110315, end: 20110315
  13. MELPERON [Concomitant]
     Route: 048
     Dates: start: 20110312, end: 20110312
  14. GLAUPAX [Concomitant]
     Indication: CONJUNCTIVITIS
     Route: 048
     Dates: start: 20110315, end: 20110316
  15. SYMBICORT [Concomitant]
     Indication: CHRONIC OBSTRUCTIVE PULMONARY DISEASE
     Route: 048
     Dates: start: 20110315, end: 20110316
  16. ZYPREXA [Suspect]
     Route: 048
     Dates: start: 20110310, end: 20110314

REACTIONS (1)
  - MYOCARDIAL INFARCTION [None]
